FAERS Safety Report 8066975-7 (Version None)
Quarter: 2012Q1

REPORT INFORMATION
  Report Type: 
  Country: None (occurrence: None)
  Receive Date: 20120124
  Receipt Date: 20120117
  Transmission Date: 20120608
  Serious: Yes (Hospitalization, Other)
  Sender: FDA-Public Use
  Company Number: US-MERCK-1102USA02267

PATIENT
  Age: 62 Year
  Sex: Female
  Weight: 73 kg

DRUGS (12)
  1. FOSAMAX [Suspect]
     Indication: OSTEOPOROSIS
     Route: 048
     Dates: start: 19990101, end: 20100101
  2. LIPITOR [Concomitant]
     Indication: HYPERCHOLESTEROLAEMIA
     Route: 048
  3. FOSAMAX [Suspect]
     Route: 048
     Dates: start: 20080407, end: 20080701
  4. [THERAPY UNSPECIFIED] [Concomitant]
     Indication: HYPERTENSION
     Route: 048
  5. PREMARIN [Concomitant]
     Indication: OESTROGEN REPLACEMENT THERAPY
     Dosage: DAYS 1-25
     Route: 048
     Dates: end: 20030101
  6. FOSAMAX [Suspect]
     Route: 048
     Dates: start: 20050701, end: 20090701
  7. FOSAMAX [Suspect]
     Route: 048
     Dates: start: 20080901, end: 20090101
  8. PROZAC [Concomitant]
     Indication: DEPRESSION
     Route: 048
     Dates: start: 19980101
  9. ALENDRONATE SODIUM [Suspect]
     Indication: OSTEOPOROSIS
     Route: 048
     Dates: start: 20100104
  10. VITAMINS (UNSPECIFIED) [Concomitant]
     Route: 048
  11. PROVERA [Concomitant]
     Indication: HORMONE REPLACEMENT THERAPY
     Dosage: DAYS 16-25
     Route: 048
  12. LIPITOR [Concomitant]
     Indication: HYPERLIPIDAEMIA
     Route: 048

REACTIONS (63)
  - MAMMOGRAM ABNORMAL [None]
  - SINUS DISORDER [None]
  - PLANTAR FASCIITIS [None]
  - LIGAMENT SPRAIN [None]
  - GALLBLADDER DISORDER [None]
  - FOOT FRACTURE [None]
  - FEMUR FRACTURE [None]
  - TREATMENT NONCOMPLIANCE [None]
  - TOOTH DISORDER [None]
  - HERPES ZOSTER [None]
  - LACERATION [None]
  - INCISIONAL HERNIA [None]
  - GASTROINTESTINAL DISORDER [None]
  - FALL [None]
  - URINARY TRACT INFECTION [None]
  - ARTHRALGIA [None]
  - MUSCLE STRAIN [None]
  - BLOOD PRESSURE INCREASED [None]
  - BONE LOSS [None]
  - CALCIUM DEFICIENCY [None]
  - CATARACT [None]
  - DIZZINESS [None]
  - PALPITATIONS [None]
  - MYOSITIS [None]
  - PAIN IN EXTREMITY [None]
  - RETINAL DISORDER [None]
  - JOINT SWELLING [None]
  - LIVER FUNCTION TEST ABNORMAL [None]
  - OVERDOSE [None]
  - ARTHROPATHY [None]
  - BREAST DISORDER [None]
  - SCOLIOSIS [None]
  - DACRYOSTENOSIS ACQUIRED [None]
  - HYPERTENSION [None]
  - BONE MARROW FAILURE [None]
  - HEPATIC STEATOSIS [None]
  - CONTUSION [None]
  - MENISCUS LESION [None]
  - WEIGHT INCREASED [None]
  - OSTEOARTHRITIS [None]
  - BACK PAIN [None]
  - HERNIA [None]
  - GASTROOESOPHAGEAL REFLUX DISEASE [None]
  - FRACTURE [None]
  - ANISOCYTOSIS [None]
  - LOWER LIMB FRACTURE [None]
  - ADVERSE EVENT [None]
  - ARTHRITIS [None]
  - OSTEOPENIA [None]
  - MARROW HYPERPLASIA [None]
  - WOUND DEHISCENCE [None]
  - VITAMIN D DEFICIENCY [None]
  - VISUAL ACUITY REDUCED [None]
  - JOINT INJURY [None]
  - FIBROCYSTIC BREAST DISEASE [None]
  - HIP FRACTURE [None]
  - BALANCE DISORDER [None]
  - CARDIOVASCULAR INSUFFICIENCY [None]
  - EAR DISORDER [None]
  - TOOTH ABSCESS [None]
  - SPINAL OSTEOARTHRITIS [None]
  - HEADACHE [None]
  - FRACTURE NONUNION [None]
